FAERS Safety Report 4726171-5 (Version None)
Quarter: 2005Q3

REPORT INFORMATION
  Report Type: 
  Country: None (occurrence: None)
  Receive Date: 20050725
  Receipt Date: 20050711
  Transmission Date: 20060218
  Serious: Yes (Hospitalization)
  Sender: FDA-Public Use
  Company Number: RENA-11439

PATIENT
  Age: 69 Year
  Sex: Male

DRUGS (12)
  1. PHOSBLOCK-250 MG TABLET [Suspect]
     Indication: HYPERPHOSPHATAEMIA
     Dosage: 2.25 G DAILY PO
     Route: 048
     Dates: start: 20031114
  2. LISINOPRIL [Concomitant]
  3. AMLODIPINE [Concomitant]
  4. VALSARTAN [Concomitant]
  5. NITROGLYCERIN [Concomitant]
  6. ZOLPIDEM TARTRATE [Concomitant]
  7. LORNOXICAM [Concomitant]
  8. EPERISONE HYDROCHLORIDE [Concomitant]
  9. KETOPROFEN [Concomitant]
  10. EPOETIN BETA [Concomitant]
  11. EPOETIN ALFA [Concomitant]
  12. MAXACALCITOL [Concomitant]

REACTIONS (2)
  - ANGINA PECTORIS [None]
  - CONDITION AGGRAVATED [None]
